FAERS Safety Report 8618842-5 (Version None)
Quarter: 2012Q3

REPORT INFORMATION
  Report Type: 
  Country: None (occurrence: None)
  Receive Date: 20120824
  Receipt Date: 20120814
  Transmission Date: 20120928
  Serious: Yes (Hospitalization, Other)
  Sender: FDA-Public Use
  Company Number: JP-MPIJNJ-2011-06400

PATIENT

DRUGS (11)
  1. MECOBALAMIN [Concomitant]
     Indication: PROPHYLAXIS
     Route: 048
  2. LANSOPRAZOLE [Concomitant]
     Route: 048
  3. VELCADE [Suspect]
     Indication: MULTIPLE MYELOMA
     Dosage: 2.4 MG, UNK
     Route: 042
     Dates: start: 20111114, end: 20111124
  4. URALYT                             /01779901/ [Concomitant]
     Indication: HYPERURICAEMIA
     Dosage: UNK
     Route: 048
  5. GOSHAJINKIGAN [Concomitant]
     Indication: PROPHYLAXIS
     Route: 048
  6. ACECOL [Concomitant]
     Indication: HYPERTENSION
     Route: 048
  7. OLOPATADINE HCL [Concomitant]
     Route: 048
  8. OXINORM                            /00547301/ [Concomitant]
     Route: 048
  9. DEXAMETHASONE [Concomitant]
     Indication: MULTIPLE MYELOMA
     Dosage: 10 MG, UNK
     Route: 042
     Dates: start: 20111014, end: 20111125
  10. PIPERACILLIN TAZOBACTAM [Suspect]
     Indication: INFECTION
  11. LOSARTAN POTASSIUM [Concomitant]
     Indication: HYPERTENSION
     Route: 048

REACTIONS (8)
  - TOXIC SKIN ERUPTION [None]
  - NEUROGENIC BLADDER [None]
  - DIARRHOEA [None]
  - NEUROPATHY PERIPHERAL [None]
  - INTERSTITIAL LUNG DISEASE [None]
  - SYNCOPE [None]
  - INFECTION [None]
  - DIZZINESS [None]
